FAERS Safety Report 16395896 (Version 5)
Quarter: 2019Q3

REPORT INFORMATION
  Report Type: Spontaneous
  Country: US (occurrence: US)
  Receive Date: 20190605
  Receipt Date: 20190802
  Transmission Date: 20191004
  Serious: No
  Sender: FDA-Public Use
  Company Number: US-VERTEX PHARMACEUTICALS-2019-004911

PATIENT
  Age: 3 Year
  Sex: Female

DRUGS (3)
  1. ORKAMBI [Suspect]
     Active Substance: IVACAFTOR\LUMACAFTOR
     Dosage: 1 PACKET (100-125 MG) GRANULES, BID
     Route: 048
     Dates: start: 20190722
  2. ZENPEP [Concomitant]
     Active Substance: PANCRELIPASE AMYLASE\PANCRELIPASE LIPASE\PANCRELIPASE PROTEASE
  3. ORKAMBI [Suspect]
     Active Substance: IVACAFTOR\LUMACAFTOR
     Indication: CYSTIC FIBROSIS
     Dosage: 1 PACKET (100-125 MG) GRANULES, BID
     Route: 048
     Dates: start: 20190430, end: 20190501

REACTIONS (1)
  - Hand-foot-and-mouth disease [Recovered/Resolved]

NARRATIVE: CASE EVENT DATE: 20190501
